FAERS Safety Report 17433930 (Version 1)
Quarter: 2020Q1

REPORT INFORMATION
  Report Type: Spontaneous
  Country: GB (occurrence: GB)
  Receive Date: 20200219
  Receipt Date: 20200219
  Transmission Date: 20200409
  Serious: Yes (Life-Threatening, Hospitalization)
  Sender: FDA-Public Use
  Company Number: GB-TEVA-2020-GB-1188124

PATIENT
  Age: 60 Year
  Sex: Female
  Weight: 78.4 kg

DRUGS (5)
  1. DERMOL [Concomitant]
     Active Substance: BENZALKONIUM CHLORIDE\CHLORHEXIDINE HYDROCHLORIDE\ISOPROPYL MYRISTATE\PARAFFIN
     Dosage: APPLY TO SKIN OR USE AS A SOAP SUBSTITUTE, 500 ML
     Route: 065
     Dates: start: 20191206, end: 20200118
  2. EVOREL CONTI [Concomitant]
     Active Substance: ESTRADIOL\NORETHINDRONE ACETATE
     Dosage: APPLIED, 2 DF
     Route: 062
     Dates: start: 20191227
  3. CARBAMAZEPINE. [Suspect]
     Active Substance: CARBAMAZEPINE
     Dosage: TWICE DAILY FOR ONE WEEK THEN INCREASE UP TO THREE TIMES DAILY, 100 MG
     Route: 065
     Dates: start: 20191128, end: 20200110
  4. HYDROMOL EMOLLIENT [Concomitant]
     Dosage: ADD HALF TO TWO CAPFULS TO BATH WATER OR APPLY TO WET SKIN AND RINSE
     Dates: start: 20200110
  5. HYDROMOL OINTMENT [Concomitant]
     Active Substance: PARAFFIN\WAX, EMULSIFYING
     Dosage: AS DIRECTED
     Dates: start: 20200110

REACTIONS (4)
  - Renal impairment [Unknown]
  - Swelling face [Unknown]
  - Rash [Recovering/Resolving]
  - Hepatic function abnormal [Unknown]

NARRATIVE: CASE EVENT DATE: 20191206
